FAERS Safety Report 5226787-6 (Version None)
Quarter: 2007Q1

REPORT INFORMATION
  Report Type: 
  Country: None (occurrence: None)
  Receive Date: 20070130
  Receipt Date: 20070117
  Transmission Date: 20070707
  Serious: Yes (Other)
  Sender: FDA-Public Use
  Company Number: 2007SP001167

PATIENT
  Age: 40 Year
  Sex: Female

DRUGS (1)
  1. NASONEX [Suspect]
     Indication: SINUSITIS
     Dosage: 0 DF; NAS
     Route: 045

REACTIONS (1)
  - CATARACT [None]
